FAERS Safety Report 5174376-4 (Version None)
Quarter: 2006Q4

REPORT INFORMATION
  Report Type: 
  Country: None (occurrence: None)
  Receive Date: 20061214
  Receipt Date: 20061204
  Transmission Date: 20070319
  Serious: Yes (Hospitalization)
  Sender: FDA-Public Use
  Company Number: CL-ELI_LILLY_AND_COMPANY-CL200612000720

PATIENT
  Age: 17 Year
  Sex: Male

DRUGS (6)
  1. STRATTERA [Suspect]
     Indication: PERSONALITY DISORDER
     Dosage: 800 MG, DAILY (1/D)
     Route: 048
     Dates: start: 20061202, end: 20061202
  2. STRATTERA [Suspect]
     Dosage: 40 MG, DAILY (1/D)
     Route: 048
  3. VALPROIC ACID [Concomitant]
     Indication: PERSONALITY DISORDER
     Dosage: 3500 MG, DAILY (1/D)
     Route: 048
     Dates: start: 20061202, end: 20061202
  4. VALPROIC ACID [Concomitant]
     Dosage: 500 MG, 2/D
     Route: 048
  5. SPIRON                                  /CHL/ [Concomitant]
     Indication: PERSONALITY DISORDER
     Dosage: 3 MG, DAILY (1/D)
     Route: 048
  6. SOCIAN [Concomitant]
     Indication: PERSONALITY DISORDER
     Dosage: 200 MG, 2/D
     Route: 048

REACTIONS (3)
  - EXTRAPYRAMIDAL DISORDER [None]
  - INTENTIONAL OVERDOSE [None]
  - SUICIDE ATTEMPT [None]
